FAERS Safety Report 4610844-9 (Version None)
Quarter: 2005Q2

REPORT INFORMATION
  Report Type: 
  Country: None (occurrence: None)
  Receive Date: 20050303
  Receipt Date: 20041104
  Transmission Date: 20051028
  Serious: No
  Sender: FDA-Public Use
  Company Number: 200420876BWH

PATIENT
  Age: 80 Year
  Sex: Male

DRUGS (3)
  1. LEVITRA [Suspect]
     Indication: ERECTILE DYSFUNCTION
     Dosage: 10 MG, ONCE, ORAL
     Route: 048
     Dates: start: 20040601
  2. BLOOD PRESSURE MEDICATION [Concomitant]
  3. DIABETIC MEDICATION [Concomitant]

REACTIONS (1)
  - ERECTILE DYSFUNCTION [None]
